FAERS Safety Report 10139250 (Version 2)
Quarter: 2015Q1

REPORT INFORMATION
  Report Type: Other
  Country: US (occurrence: US)
  Receive Date: 20140429
  Receipt Date: 20150218
  Transmission Date: 20150720
  Serious: Yes (Hospitalization, Other)
  Sender: FDA-Public Use
  Company Number: US-GSKPPD-2014GSK042918

PATIENT
  Age: 57 Year
  Sex: Male

DRUGS (4)
  1. EFFIENT [Concomitant]
     Active Substance: PRASUGREL HYDROCHLORIDE
  2. AVANDIA [Suspect]
     Active Substance: ROSIGLITAZONE MALEATE
     Indication: DIABETES MELLITUS
     Dosage: DATES OF AVANDIA USE COULD NOT BE CONFIRMED IN RECORDS REVIEWED.
     Route: 048
  3. ALTACE [Concomitant]
     Active Substance: RAMIPRIL
  4. ARIXTRA [Concomitant]
     Active Substance: FONDAPARINUX SODIUM
     Dosage: TREATMENT MEDICATION
     Route: 058
     Dates: start: 201010, end: 201010

REACTIONS (1)
  - Myocardial infarction [Recovered/Resolved]

NARRATIVE: CASE EVENT DATE: 20101002
